FAERS Safety Report 10035257 (Version 1)
Quarter: 2014Q1

REPORT INFORMATION
  Report Type: Spontaneous
  Country: IT (occurrence: IT)
  Receive Date: 20140325
  Receipt Date: 20140325
  Transmission Date: 20141002
  Serious: Yes (Other)
  Sender: FDA-Public Use
  Company Number: 2013SP003734

PATIENT
  Age: 25 Year
  Sex: Male

DRUGS (4)
  1. CARBOPLATIN [Suspect]
     Indication: GERM CELL CANCER
  2. ETOPOSIDE [Suspect]
     Indication: GERM CELL CANCER
  3. CYCLOPHOSPHAMIDE [Suspect]
     Indication: GERM CELL CANCER
  4. GRANULOCYTE COLONY-STIMULATING FACTOR NOS [Concomitant]

REACTIONS (4)
  - Liver injury [Recovered/Resolved]
  - Alpha 1 foetoprotein increased [Recovered/Resolved]
  - Aspartate aminotransferase increased [Recovered/Resolved]
  - Alanine aminotransferase increased [Recovered/Resolved]
